FAERS Safety Report 5269702-1 (Version None)
Quarter: 2007Q1

REPORT INFORMATION
  Report Type: 
  Country: None (occurrence: None)
  Receive Date: 20070320
  Receipt Date: 20070312
  Transmission Date: 20070707
  Serious: Yes (Hospitalization)
  Sender: FDA-Public Use
  Company Number: 2007UW04784

PATIENT
  Age: 31 Year
  Sex: Female

DRUGS (2)
  1. SEROQUEL [Suspect]
     Dosage: SWITCHED TO DEPAKOTE
     Route: 048
  2. DEPAKOTE [Concomitant]

REACTIONS (1)
  - PERFORATED ULCER [None]
